FAERS Safety Report 8087040-9 (Version None)
Quarter: 2012Q1

REPORT INFORMATION
  Report Type: 
  Country: None (occurrence: None)
  Receive Date: 20120128
  Receipt Date: 20110419
  Transmission Date: 20120608
  Serious: No
  Sender: FDA-Public Use
  Company Number: US-ABBOTT-11P-163-0720921-00

PATIENT
  Sex: Female

DRUGS (3)
  1. FOLIC ACID [Concomitant]
     Indication: VITAMIN SUPPLEMENTATION
  2. METHOTREXATE [Concomitant]
     Indication: SPONDYLOARTHROPATHY
  3. HUMIRA [Suspect]
     Indication: SPONDYLOARTHROPATHY
     Dates: start: 20101228, end: 20110401

REACTIONS (2)
  - VIRAL INFECTION [None]
  - INJECTION SITE ERYTHEMA [None]
